FAERS Safety Report 9482989 (Version 3)
Quarter: 2013Q3

REPORT INFORMATION
  Report Type: Spontaneous
  Country: US (occurrence: US)
  Receive Date: 20130828
  Receipt Date: 20130912
  Transmission Date: 20140515
  Serious: No
  Sender: FDA-Public Use
  Company Number: US-009507513-1308USA012217

PATIENT
  Age: 25 Year
  Sex: Female
  Weight: 55.78 kg

DRUGS (1)
  1. NEXPLANON [Suspect]
     Indication: CONTRACEPTION
     Dosage: 1 ROD
     Route: 059
     Dates: start: 20121227, end: 20130827

REACTIONS (3)
  - Haemorrhage [Not Recovered/Not Resolved]
  - Device kink [Recovered/Resolved]
  - Menstruation irregular [Recovered/Resolved]
